FAERS Safety Report 10161984 (Version 1)
Quarter: 2014Q2

REPORT INFORMATION
  Report Type: Spontaneous
  Country: US (occurrence: None)
  Receive Date: 20140508
  Receipt Date: 20140508
  Transmission Date: 20141212
  Serious: Yes (Hospitalization)
  Sender: FDA-Public Use
  Company Number: None

PATIENT
  Sex: 0

DRUGS (1)
  1. DULOXETINE [Suspect]
     Route: 048
     Dates: start: 20140109, end: 20140222

REACTIONS (4)
  - Generalised tonic-clonic seizure [None]
  - Heart rate increased [None]
  - Hypertension [None]
  - Drug intolerance [None]
